FAERS Safety Report 23094498 (Version 1)
Quarter: 2023Q4

REPORT INFORMATION
  Report Type: Spontaneous
  Country: KR (occurrence: KR)
  Receive Date: 20231023
  Receipt Date: 20231023
  Transmission Date: 20240110
  Serious: Yes (Other)
  Sender: FDA-Public Use
  Company Number: KR-SA-SAC20231019001026

PATIENT
  Age: 41 Year
  Sex: Male

DRUGS (2)
  1. LEMTRADA [Suspect]
     Active Substance: ALEMTUZUMAB
     Dosage: 60 MG
     Route: 065
     Dates: start: 20160502
  2. LEMTRADA [Suspect]
     Active Substance: ALEMTUZUMAB
     Dosage: 36 MG
     Route: 065
     Dates: end: 20190401

REACTIONS (1)
  - Myocardial infarction [Recovering/Resolving]

NARRATIVE: CASE EVENT DATE: 20220801
